FAERS Safety Report 11281167 (Version 2)
Quarter: 2015Q3

REPORT INFORMATION
  Report Type: Spontaneous
  Country: US (occurrence: US)
  Receive Date: 20150717
  Receipt Date: 20150831
  Transmission Date: 20151125
  Serious: No
  Sender: FDA-Public Use
  Company Number: US-LUNDBECK-DKLU1112831

PATIENT
  Age: 79 Year
  Sex: Male

DRUGS (2)
  1. NORTHERA [Suspect]
     Active Substance: DROXIDOPA
     Indication: PARKINSON^S DISEASE
     Route: 048
     Dates: start: 20150524, end: 20150605
  2. NORTHERA [Suspect]
     Active Substance: DROXIDOPA
     Indication: HYPERTENSION

REACTIONS (4)
  - Dizziness [Unknown]
  - Headache [Unknown]
  - Dysarthria [Unknown]
  - Back pain [Unknown]

NARRATIVE: CASE EVENT DATE: 20150518
